FAERS Safety Report 10601452 (Version 1)
Quarter: 2014Q4

REPORT INFORMATION
  Report Type: Spontaneous
  Country: US (occurrence: None)
  Receive Date: 20141120
  Receipt Date: 20141120
  Transmission Date: 20150529
  Serious: Yes (Hospitalization)
  Sender: FDA-Public Use
  Company Number: FK201405191

PATIENT
  Age: 44 Year
  Sex: Male

DRUGS (8)
  1. AZITHROMYCIN [Suspect]
     Active Substance: AZITHROMYCIN ANHYDROUS
     Indication: PYREXIA
  2. CLINDAMYCIN [Concomitant]
     Active Substance: CLINDAMYCIN\CLINDAMYCIN PHOSPHATE
  3. PROMETHAZINE HYDROCHLORIDE (PROMETHAZINE HYDROCHLORID) [Suspect]
     Active Substance: PROMETHAZINE HYDROCHLORIDE
     Indication: PYREXIA
  4. MEROPENEM (MEROPENEM) [Concomitant]
     Active Substance: MEROPENEM
  5. NOREPINEPHRINE (NOREPINEPHRINE) [Concomitant]
  6. DEXTROMETHORPHAN HYDROBROMIDE (DEXTROMETHORPHAN HYDROBROMIDE) [Suspect]
     Active Substance: DEXTROMETHORPHAN HYDROBROMIDE
     Indication: PYREXIA
  7. VANCOMYCIN (VANCOMYCIN) [Concomitant]
     Active Substance: VANCOMYCIN
  8. AZTREONEM (AZTREONAM) [Concomitant]

REACTIONS (5)
  - Tachycardia [None]
  - Superinfection [None]
  - Rhonchi [None]
  - Hypotension [None]
  - Drug reaction with eosinophilia and systemic symptoms [None]
